FAERS Safety Report 21897318 (Version 1)
Quarter: 2023Q1

REPORT INFORMATION
  Report Type: Spontaneous
  Country: EG (occurrence: EG)
  Receive Date: 20230123
  Receipt Date: 20230123
  Transmission Date: 20230417
  Serious: Yes (Death, Other)
  Sender: FDA-Public Use
  Company Number: EG-STERISCIENCE B.V.-2023-ST-000229

PATIENT
  Age: 4 Year
  Sex: Male

DRUGS (14)
  1. MIDAZOLAM [Suspect]
     Active Substance: MIDAZOLAM
     Indication: Status epilepticus
     Dosage: 0.2 MILLIGRAM/KILOGRAM/DOSE
     Route: 042
     Dates: start: 201907
  2. MIDAZOLAM [Suspect]
     Active Substance: MIDAZOLAM
     Indication: Generalised tonic-clonic seizure
     Dosage: 0.2 MILLIGRAM/KILOGRAM/DOSE
     Route: 042
     Dates: start: 201907
  3. MIDAZOLAM [Suspect]
     Active Substance: MIDAZOLAM
     Dosage: 0.15 MILLIGRAM/KILOGRAM, BOLUS
     Dates: start: 201907
  4. MIDAZOLAM [Suspect]
     Active Substance: MIDAZOLAM
     Dosage: LOADING DOSE 0.15 MILLIGRAM/KILOGRAM, FOLLOWED BY 2 ?G/KG/MIN INFUSION AND INFUSION RATE WAS ESCALAT
     Route: 042
     Dates: start: 201907
  5. PHENYTOIN [Suspect]
     Active Substance: PHENYTOIN
     Indication: Status epilepticus
     Dosage: 20 MILLIGRAM/KILOGRAM
     Route: 042
     Dates: start: 201907
  6. PHENYTOIN [Suspect]
     Active Substance: PHENYTOIN
     Indication: Generalised tonic-clonic seizure
  7. PROPOFOL [Suspect]
     Active Substance: PROPOFOL
     Indication: Status epilepticus
     Dosage: 50 MILLIGRAM
     Dates: start: 201907
  8. PROPOFOL [Suspect]
     Active Substance: PROPOFOL
     Indication: Generalised tonic-clonic seizure
     Dosage: 30 MILLIGRAM
     Dates: start: 201907
  9. PROPOFOL [Suspect]
     Active Substance: PROPOFOL
     Indication: Induction of anaesthesia
     Dosage: LOADING DOSE 1 MILLIGRAM/KILOGRAM, INFUSION, FOLLOWED BY 30 ?G/KG/MIN
     Route: 042
     Dates: start: 201907
  10. SODIUM CHLORIDE [Suspect]
     Active Substance: SODIUM CHLORIDE
     Indication: Status epilepticus
     Dosage: BOLUS 20 MILLILITRE PER KILOGRAM, FOLLOWED BY CONTINUOUS FULL MAINTENANCE IV FLUID INFUSION
     Route: 042
     Dates: start: 201907
  11. SODIUM CHLORIDE [Suspect]
     Active Substance: SODIUM CHLORIDE
     Indication: Generalised tonic-clonic seizure
  12. TRANEXAMIC ACID [Concomitant]
     Active Substance: TRANEXAMIC ACID
     Indication: Haemorrhage prophylaxis
     Dosage: 10 MILLIGRAM/KILOGRAM
     Route: 042
     Dates: start: 201907, end: 201907
  13. SEVOFLURANE [Concomitant]
     Active Substance: SEVOFLURANE
     Indication: Induction and maintenance of anaesthesia
     Dosage: UNK
     Dates: start: 201907
  14. FENTANYL [Concomitant]
     Active Substance: FENTANYL
     Indication: Induction of anaesthesia
     Dosage: UNK
     Dates: start: 201907

REACTIONS (8)
  - Cardiac arrest [Fatal]
  - Drug ineffective for unapproved indication [Fatal]
  - Anuria [Unknown]
  - Hyperkalaemia [Unknown]
  - Haemodynamic instability [Unknown]
  - Metabolic acidosis [Unknown]
  - Hypotension [Unknown]
  - Acidosis [Unknown]

NARRATIVE: CASE EVENT DATE: 20190701
